FAERS Safety Report 15127980 (Version 1)
Quarter: 2018Q3

REPORT INFORMATION
  Report Type: Report from Study
  Country: JP (occurrence: JP)
  Receive Date: 20180710
  Receipt Date: 20180710
  Transmission Date: 20181010
  Serious: Yes (Other)
  Sender: FDA-Public Use
  Company Number: PHHY2010JP78083

PATIENT
  Age: 57 Year
  Sex: Female
  Weight: 50 kg

DRUGS (8)
  1. ALESION [Concomitant]
     Active Substance: EPINASTINE HYDROCHLORIDE
     Indication: SEASONAL ALLERGY
     Dosage: 20 MG, UNK
     Route: 048
     Dates: start: 20110304, end: 20110314
  2. EXJADE [Suspect]
     Active Substance: DEFERASIROX
     Indication: APLASIA PURE RED CELL
     Dosage: 500 MG, QD
     Route: 048
     Dates: start: 20100409, end: 20100410
  3. EXJADE [Suspect]
     Active Substance: DEFERASIROX
     Dosage: 750 MG, QD
     Route: 048
     Dates: start: 20100820, end: 20100902
  4. EXJADE [Suspect]
     Active Substance: DEFERASIROX
     Dosage: 125 MG, QD
     Route: 048
     Dates: start: 20100603, end: 20100617
  5. EXJADE [Suspect]
     Active Substance: DEFERASIROX
     Indication: IRON OVERLOAD
     Dosage: 1000 MG, QD
     Route: 048
     Dates: start: 20100311, end: 20100325
  6. EXJADE [Suspect]
     Active Substance: DEFERASIROX
     Dosage: 250 MG, QD
     Route: 048
     Dates: start: 20100618, end: 20100702
  7. EXJADE [Suspect]
     Active Substance: DEFERASIROX
     Dosage: 500 MG, QD
     Route: 048
     Dates: start: 20100703, end: 20100819
  8. EXJADE [Suspect]
     Active Substance: DEFERASIROX
     Dosage: 1000 MG, QD
     Route: 048
     Dates: start: 20100903

REACTIONS (10)
  - Hypersensitivity [Recovered/Resolved]
  - Nausea [Recovering/Resolving]
  - Hypersensitivity [Recovered/Resolved]
  - Urticaria [Recovered/Resolved]
  - Pruritus [Recovered/Resolved]
  - Diarrhoea [Recovering/Resolving]
  - Generalised oedema [Recovered/Resolved]
  - Feeling hot [Recovered/Resolved]
  - Hypersensitivity [Recovering/Resolving]
  - Hot flush [Recovered/Resolved]

NARRATIVE: CASE EVENT DATE: 20100311
